FAERS Safety Report 21714817 (Version 1)
Quarter: 2022Q4

REPORT INFORMATION
  Report Type: Spontaneous
  Country: NL (occurrence: None)
  Receive Date: 20221212
  Receipt Date: 20221212
  Transmission Date: 20230112
  Serious: Yes (Life-Threatening, Hospitalization)
  Sender: FDA-Public Use
  Company Number: 2022A401950

PATIENT
  Sex: Male
  Weight: 117 kg

DRUGS (9)
  1. DAPAGLIFLOZIN [Suspect]
     Active Substance: DAPAGLIFLOZIN
     Indication: Cardiac failure
     Dosage: 1DD1
     Route: 065
     Dates: start: 20181111, end: 20221114
  2. DAPAGLIFLOZIN [Suspect]
     Active Substance: DAPAGLIFLOZIN
     Indication: Diabetes mellitus
     Dosage: 1DD1
     Route: 065
     Dates: start: 20181111, end: 20221114
  3. ROSUVASTATIN [Concomitant]
     Active Substance: ROSUVASTATIN
  4. METOPROLOL TARTRAAT [Concomitant]
  5. LOSARTAN [Concomitant]
     Active Substance: LOSARTAN
  6. CARBASALAATCALCIUM POEDER [Concomitant]
  7. GLICLAZIDE [Concomitant]
     Active Substance: GLICLAZIDE
  8. CITALOPRAM [Concomitant]
     Active Substance: CITALOPRAM HYDROBROMIDE
  9. PANTOPRAZOLE SODIUM [Concomitant]
     Active Substance: PANTOPRAZOLE SODIUM

REACTIONS (1)
  - Emphysematous pyelonephritis [Recovering/Resolving]
